FAERS Safety Report 10025096 (Version 1)
Quarter: 2014Q1

REPORT INFORMATION
  Report Type: Spontaneous
  Country: SE (occurrence: SE)
  Receive Date: 20140320
  Receipt Date: 20140320
  Transmission Date: 20141002
  Serious: Yes (Hospitalization, Other)
  Sender: FDA-Public Use
  Company Number: SE-PFIZER INC-2014075718

PATIENT
  Age: 38 Year
  Sex: Male

DRUGS (1)
  1. DALACIN [Suspect]
     Dosage: UNK

REACTIONS (1)
  - Angioedema [Recovered/Resolved]
